FAERS Safety Report 13479821 (Version 1)
Quarter: 2017Q2

REPORT INFORMATION
  Report Type: Spontaneous
  Country: FR (occurrence: FR)
  Receive Date: 20170425
  Receipt Date: 20170425
  Transmission Date: 20170830
  Serious: Yes (Other)
  Sender: FDA-Public Use
  Company Number: FR-ABBVIE-17K-056-1953592-00

PATIENT
  Age: 61 Year
  Sex: Male

DRUGS (1)
  1. DUODOPA [Suspect]
     Active Substance: CARBIDOPA\LEVODOPA
     Indication: PARKINSON^S DISEASE
     Route: 050

REACTIONS (6)
  - Vomiting [Unknown]
  - Gastric perforation [Unknown]
  - Device dislocation [Unknown]
  - Device kink [Unknown]
  - Device damage [Unknown]
  - Device connection issue [Unknown]

NARRATIVE: CASE EVENT DATE: 2017
